FAERS Safety Report 10078371 (Version 1)
Quarter: 2014Q1

REPORT INFORMATION
  Report Type: Spontaneous
  Country: US (occurrence: None)
  Receive Date: 20140327
  Receipt Date: 20140327
  Transmission Date: 20141002
  Serious: Yes (Other)
  Sender: FDA-Public Use
  Company Number: ALB-002-14-US

PATIENT
  Age: 74 Year
  Sex: Male

DRUGS (1)
  1. HUMAN NORMAL IMMUNOGLOBULIN [Suspect]
     Indication: SURGERY
     Dosage: TOTAL
     Route: 042

REACTIONS (1)
  - Allergic transfusion reaction [None]
